FAERS Safety Report 8070242-5 (Version None)
Quarter: 2012Q1

REPORT INFORMATION
  Report Type: 
  Country: None (occurrence: None)
  Receive Date: 20120125
  Receipt Date: 20120120
  Transmission Date: 20120608
  Serious: No
  Sender: FDA-Public Use
  Company Number: US-PFIZER INC-2012017289

PATIENT
  Sex: Female
  Weight: 56.689 kg

DRUGS (2)
  1. LIPITOR [Suspect]
     Indication: PROPHYLAXIS
     Dosage: 40 MG, 1X/DAY
     Route: 048
     Dates: start: 20060101
  2. LISINOPRIL [Concomitant]
     Indication: PROPHYLAXIS
     Dosage: UNK

REACTIONS (1)
  - TACHYCARDIA [None]
